FAERS Safety Report 12834361 (Version 1)
Quarter: 2016Q4

REPORT INFORMATION
  Report Type: Spontaneous
  Country: US (occurrence: US)
  Receive Date: 20161010
  Receipt Date: 20161010
  Transmission Date: 20170207
  Serious: No
  Sender: FDA-Public Use
  Company Number: US-PERRIGO-16US017333

PATIENT
  Age: 49 Year
  Sex: Female
  Weight: 77.98 kg

DRUGS (1)
  1. NICOTINE POLACRILEX [Suspect]
     Active Substance: NICOTINE
     Indication: SMOKING CESSATION THERAPY
     Dosage: 4 MG, 10 TIMES DAILY
     Route: 002
     Dates: start: 20160611, end: 201606

REACTIONS (4)
  - Gingival discomfort [Recovered/Resolved]
  - Oral mucosal blistering [Recovered/Resolved]
  - Skin exfoliation [Recovered/Resolved]
  - Oral discomfort [Recovered/Resolved]

NARRATIVE: CASE EVENT DATE: 20160611
